FAERS Safety Report 17336133 (Version 1)
Quarter: 2020Q1

REPORT INFORMATION
  Report Type: Spontaneous
  Country: IE (occurrence: IE)
  Receive Date: 20200129
  Receipt Date: 20200129
  Transmission Date: 20200409
  Serious: Yes (Other)
  Sender: FDA-Public Use
  Company Number: IE-ADVANZ PHARMA-202001000319

PATIENT

DRUGS (19)
  1. VITAPOS NOCTE [Concomitant]
     Indication: CONJUNCTIVITIS
     Dosage: (OC-VITAPOS NOCTE)
  2. DEXAFREE [Suspect]
     Active Substance: DEXAMETHASONE SODIUM PHOSPHATE
     Indication: CONJUNCTIVITIS
     Dosage: QID (G-DEXAFREE)
  3. MOXIFLOXACIN. [Concomitant]
     Active Substance: MOXIFLOXACIN
     Indication: ANTIBIOTIC THERAPY
     Dosage: UNK UNK, QD
  4. ACETYLCYSTEINE 5 PERCENTAGE [Concomitant]
     Indication: CONJUNCTIVITIS
     Dosage: QID
  5. IKERVIS [Concomitant]
     Active Substance: CYCLOSPORINE
     Indication: CONJUNCTIVITIS
     Dosage: G-CYCLOSPORINE (IKERVIS) NOCTE
  6. POSACONAZOLE [Concomitant]
     Active Substance: POSACONAZOLE
     Indication: ANTIFUNGAL PROPHYLAXIS
     Dosage: UNK
  7. PREDNISOLONE. [Suspect]
     Active Substance: PREDNISOLONE
     Indication: ACUTE GRAFT VERSUS HOST DISEASE
     Dosage: 20 MG, QD (TAPERED BY 10 PERCENT EVERY 5-7 DAYS)
     Route: 048
  8. PREDNISOLONE. [Suspect]
     Active Substance: PREDNISOLONE
     Dosage: 2 MG/KG
     Route: 048
  9. VALACICLOVIR [Concomitant]
     Active Substance: VALACYCLOVIR HYDROCHLORIDE
     Indication: ANTIVIRAL PROPHYLAXIS
     Dosage: UNK
  10. TACROLIMUS 0.03 PERCENTAGE [Concomitant]
     Indication: CONJUNCTIVITIS
     Dosage: 0.03 %, BID (OC-TACROLIMUS)
  11. MYCOPHENOLATE MOFETIL. [Concomitant]
     Active Substance: MYCOPHENOLATE MOFETIL
     Indication: CONJUNCTIVITIS
     Dosage: 1 G, BID
  12. PREDNISOLONE. [Suspect]
     Active Substance: PREDNISOLONE
     Dosage: 40 MG
  13. METHYLPREDNISOLONE. [Suspect]
     Active Substance: METHYLPREDNISOLONE
     Indication: CONJUNCTIVITIS
     Dosage: UNK
     Route: 042
  14. MAXIDEX [Suspect]
     Active Substance: DEXAMETHASONE
     Indication: CONJUNCTIVITIS
     Dosage: G-MAXIDEX 2 HOURS
  15. CICLOSPORIN [Concomitant]
     Active Substance: CYCLOSPORINE
     Indication: CONJUNCTIVITIS
     Dosage: 50 MG, BID
  16. DOXYCYCLINE. [Concomitant]
     Active Substance: DOXYCYCLINE
     Indication: ANTIBIOTIC PROPHYLAXIS
     Dosage: 100 MG, QD
  17. PREDNISOLONE. [Suspect]
     Active Substance: PREDNISOLONE
     Dosage: 30 MG, QD
     Route: 048
  18. INFLIXIMAB [Concomitant]
     Active Substance: INFLIXIMAB
     Indication: CONJUNCTIVITIS
     Dosage: UNK
  19. TIMOLOL. [Concomitant]
     Active Substance: TIMOLOL
     Indication: CONJUNCTIVITIS
     Dosage: QD (G-TIMOLOL (TIMOLOL) OCULUS DEXTER (OD) (RIGHT EYE))

REACTIONS (1)
  - Cushing^s syndrome [Unknown]
